FAERS Safety Report 10228921 (Version 1)
Quarter: 2014Q2

REPORT INFORMATION
  Report Type: Spontaneous
  Country: US (occurrence: US)
  Receive Date: 20140610
  Receipt Date: 20140610
  Transmission Date: 20141212
  Serious: Yes (Other)
  Sender: FDA-Public Use
  Company Number: US-ABBVIE-14P-163-1243706-00

PATIENT
  Age: 67 Year
  Sex: Female

DRUGS (2)
  1. SEVOFLURANE [Suspect]
     Indication: GENERAL ANAESTHESIA
     Dosage: 0.3 MAC
  2. PROPOFOL [Suspect]
     Indication: GENERAL ANAESTHESIA

REACTIONS (1)
  - Nerve conduction studies abnormal [Recovered/Resolved]
